FAERS Safety Report 10073399 (Version 3)
Quarter: 2014Q2

REPORT INFORMATION
  Report Type: Spontaneous
  Country: JP (occurrence: JP)
  Receive Date: 20140411
  Receipt Date: 20140609
  Transmission Date: 20141212
  Serious: Yes (Death, Life-Threatening, Hospitalization)
  Sender: FDA-Public Use
  Company Number: JP-BRISTOL-MYERS SQUIBB COMPANY-19955491

PATIENT
  Age: 29 Year
  Sex: Male
  Weight: 55 kg

DRUGS (16)
  1. ERBITUX SOLN FOR INF 5MG/ML [Suspect]
     Indication: SALIVARY GLAND CANCER
     Dosage: 683.2MG?689.2 MG ON 06AUG123-20AUG13:14DAYS
     Route: 041
     Dates: start: 20131203, end: 20131203
  2. MINOMYCIN [Concomitant]
     Indication: PROPHYLAXIS
     Route: 050
     Dates: start: 20131203, end: 20131217
  3. ALLELOCK [Concomitant]
     Indication: PROPHYLAXIS
     Dosage: GRANULES
     Route: 050
     Dates: start: 20131203, end: 20140114
  4. DEXART [Concomitant]
     Indication: PROPHYLAXIS
     Route: 041
     Dates: start: 20131203, end: 20131203
  5. POLARAMINE [Concomitant]
     Indication: PROPHYLAXIS
     Route: 042
     Dates: start: 20131203, end: 20131203
  6. ROHYPNOL [Concomitant]
     Indication: INSOMNIA
     Route: 041
     Dates: start: 20131004, end: 20131205
  7. MORPHINE SULFATE [Concomitant]
     Indication: METASTASES TO MENINGES
     Route: 050
     Dates: start: 20131121, end: 20131231
  8. RINDERON [Concomitant]
     Indication: METASTASES TO MENINGES
     Dosage: SYRUP
     Route: 050
     Dates: start: 20130907, end: 20140114
  9. YOKUKANSAN [Concomitant]
     Indication: INSOMNIA
     Dosage: GRANULES
     Route: 050
     Dates: start: 20131007, end: 20140108
  10. MAGLAX [Concomitant]
     Indication: CONSTIPATION
     Dosage: TABLET
     Route: 050
     Dates: start: 20130909, end: 20140102
  11. RISPERDAL [Concomitant]
     Indication: INSOMNIA
     Route: 050
     Dates: start: 20131003, end: 20131219
  12. ACETAMINOPHEN [Concomitant]
     Indication: METASTASES TO MENINGES
     Dosage: POWDER FOR SYRUP
     Route: 050
     Dates: start: 20131120, end: 20140114
  13. PURSENNID [Concomitant]
     Indication: CONSTIPATION
     Dosage: TABLET
     Route: 050
     Dates: start: 20130906, end: 20140114
  14. TAKEPRON [Concomitant]
     Indication: PROPHYLAXIS
     Dosage: TABLET
     Route: 050
     Dates: start: 20130906, end: 20140114
  15. BISOLVON [Concomitant]
     Indication: LUNG NEOPLASM
     Dosage: SYRUP
     Route: 050
     Dates: start: 20130901, end: 20140114
  16. MUCODYNE [Concomitant]
     Indication: LUNG NEOPLASM
     Dosage: SYRUP
     Route: 050
     Dates: start: 20130901, end: 20140114

REACTIONS (5)
  - Death [Fatal]
  - Arrhythmia [Recovered/Resolved]
  - Hydrocephalus [Recovering/Resolving]
  - Sepsis [Recovering/Resolving]
  - Infusion related reaction [Recovered/Resolved]
